FAERS Safety Report 9806490 (Version 6)
Quarter: 2016Q2

REPORT INFORMATION
  Report Type: Spontaneous
  Country: US (occurrence: US)
  Receive Date: 20140109
  Receipt Date: 20160602
  Transmission Date: 20160815
  Serious: Yes (Hospitalization, Disabling, Other)
  Sender: FDA-Public Use
  Company Number: US-009507513-99050125

PATIENT
  Sex: Male
  Weight: 90.7 kg

DRUGS (3)
  1. FINASTERIDE. [Suspect]
     Active Substance: FINASTERIDE
     Indication: ALOPECIA
     Dosage: 5 MG, UNK
     Route: 048
     Dates: start: 1999, end: 200001
  2. HYDROCODONE [Concomitant]
     Active Substance: HYDROCODONE
     Indication: NECK INJURY
     Dosage: UNK
     Dates: start: 1997, end: 1999
  3. PROPECIA [Suspect]
     Active Substance: FINASTERIDE
     Indication: ALOPECIA
     Dosage: 1 MG, QD
     Route: 048
     Dates: start: 199901, end: 200001

REACTIONS (55)
  - Spinal fusion surgery [Unknown]
  - Musculoskeletal pain [Unknown]
  - Fatigue [Unknown]
  - Shoulder operation [Unknown]
  - Spondylolisthesis [Unknown]
  - Rash [Unknown]
  - Sexual dysfunction [Recovering/Resolving]
  - Poor quality sleep [Unknown]
  - Hypogonadism [Unknown]
  - Knee operation [Unknown]
  - Dysuria [Unknown]
  - Therapeutic response decreased [Unknown]
  - Headache [Unknown]
  - Back injury [Not Recovered/Not Resolved]
  - Limb injury [Unknown]
  - Prostatic specific antigen increased [Recovering/Resolving]
  - Drug administration error [Unknown]
  - Nocturia [Unknown]
  - Genital hypoaesthesia [Unknown]
  - Cyst [Unknown]
  - Testicular pain [Unknown]
  - Hypoaesthesia oral [Unknown]
  - Hypoaesthesia [Unknown]
  - Joint injury [Unknown]
  - Dyspnoea [Unknown]
  - Erectile dysfunction [Unknown]
  - Exercise tolerance decreased [Unknown]
  - Dysuria [Unknown]
  - Chest pain [Unknown]
  - Arthroscopy [Unknown]
  - Varicocele repair [Unknown]
  - Pruritus [Unknown]
  - Prostatitis [Unknown]
  - Sebaceous gland disorder [Unknown]
  - Irritability [Unknown]
  - Libido increased [Unknown]
  - Cognitive disorder [Not Recovered/Not Resolved]
  - Hernia repair [Unknown]
  - Drug intolerance [Unknown]
  - Back injury [Unknown]
  - Peripheral nerve transposition [Unknown]
  - Benign prostatic hyperplasia [Unknown]
  - Libido decreased [Unknown]
  - Pneumonia [Unknown]
  - Spinal osteoarthritis [Unknown]
  - Neck injury [Not Recovered/Not Resolved]
  - Testicular atrophy [Unknown]
  - Rash pustular [Unknown]
  - Back pain [Unknown]
  - Pain in extremity [Unknown]
  - Weight decreased [Unknown]
  - Cough [Unknown]
  - Hypergonadism [Unknown]
  - Drug ineffective [Unknown]
  - Depression [Unknown]

NARRATIVE: CASE EVENT DATE: 1999
